FAERS Safety Report 10384678 (Version 1)
Quarter: 2014Q3

REPORT INFORMATION
  Report Type: Spontaneous
  Country: US (occurrence: None)
  Receive Date: 20140813
  Receipt Date: 20140813
  Transmission Date: 20150326
  Serious: Yes (Disabling)
  Sender: FDA-Public Use
  Company Number: None

PATIENT
  Age: 63 Year
  Sex: Male
  Weight: 83.92 kg

DRUGS (4)
  1. LEVOFLOXACIN [Suspect]
     Active Substance: LEVOFLOXACIN
     Indication: EAR INFECTION
     Dosage: 10 PILLS  1 DAILY  BY MOUTH
     Route: 048
     Dates: start: 20130209, end: 20130219
  2. LOSARTAN POTASSIUM. [Concomitant]
     Active Substance: LOSARTAN POTASSIUM
  3. LYRICA [Concomitant]
     Active Substance: PREGABALIN
  4. AMITRIPTYLINE [Concomitant]
     Active Substance: AMITRIPTYLINE

REACTIONS (8)
  - Arthropathy [None]
  - Liver disorder [None]
  - Gastrointestinal disorder [None]
  - Pyrexia [None]
  - Brachial plexopathy [None]
  - Neuropathy peripheral [None]
  - Weight decreased [None]
  - Tendon disorder [None]

NARRATIVE: CASE EVENT DATE: 20130320
